FAERS Safety Report 17214361 (Version 1)
Quarter: 2019Q4

REPORT INFORMATION
  Report Type: Spontaneous
  Country: SE (occurrence: SE)
  Receive Date: 20191230
  Receipt Date: 20191230
  Transmission Date: 20200122
  Serious: Yes (Hospitalization)
  Sender: FDA-Public Use
  Company Number: SE-MYLANLABS-2019M1127474

PATIENT
  Age: 69 Year
  Sex: Male

DRUGS (1)
  1. PROMETHAZINE [Suspect]
     Active Substance: PROMETHAZINE HYDROCHLORIDE
     Indication: PRODUCT USED FOR UNKNOWN INDICATION
     Dosage: 60 ST
     Route: 048
     Dates: start: 20190617, end: 20190618

REACTIONS (8)
  - Intentional overdose [Unknown]
  - Confusional state [Unknown]
  - Dry mouth [Unknown]
  - Depressed level of consciousness [Unknown]
  - Tremor [Unknown]
  - Mydriasis [Unknown]
  - Intentional self-injury [Unknown]
  - Tachycardia [Unknown]

NARRATIVE: CASE EVENT DATE: 20190617
